FAERS Safety Report 19899449 (Version 2)
Quarter: 2025Q3

REPORT INFORMATION
  Report Type: Spontaneous
  Country: US (occurrence: US)
  Receive Date: 20210930
  Receipt Date: 20250707
  Transmission Date: 20251020
  Serious: Yes (Life-Threatening, Hospitalization, Other)
  Sender: AUROBINDO
  Company Number: US-MLMSERVICE-20210917-3112395-1

PATIENT
  Age: 12 Month
  Sex: Male

DRUGS (2)
  1. LEVETIRACETAM [Suspect]
     Active Substance: LEVETIRACETAM
     Indication: Status epilepticus
     Route: 065
  2. MIDAZOLAM [Concomitant]
     Active Substance: MIDAZOLAM
     Indication: Unresponsive to stimuli
     Route: 065

REACTIONS (1)
  - Drug ineffective [Unknown]
